FAERS Safety Report 7798037-8 (Version None)
Quarter: 2011Q4

REPORT INFORMATION
  Report Type: 
  Country: None (occurrence: None)
  Receive Date: 20111005
  Receipt Date: 20111003
  Transmission Date: 20120403
  Serious: Yes (Death)
  Sender: FDA-Public Use
  Company Number: JP-B.I. PHARMACEUTICALS,INC./RIDGEFIELD-2011-BP-22886NB

PATIENT
  Age: 78 Year
  Sex: Female

DRUGS (9)
  1. ASPIRIN [Concomitant]
     Indication: ATRIAL FIBRILLATION
     Dosage: 100 MG
     Route: 048
     Dates: start: 20090218, end: 20110926
  2. CIBENOL [Concomitant]
     Indication: ARRHYTHMIA
     Dosage: 150 MG
     Route: 048
     Dates: start: 20110422, end: 20110926
  3. TENORMIN [Concomitant]
     Indication: HYPERTENSION
     Dosage: 50 MG
     Route: 048
     Dates: start: 20060101
  4. AMLODIPINE [Concomitant]
     Indication: HYPERTENSION
     Dosage: 5 MG
     Route: 048
     Dates: start: 20100501, end: 20110926
  5. NEO-MERCAZOLE TAB [Concomitant]
     Dosage: 5 MG
     Route: 065
     Dates: start: 20060101
  6. LIVALO [Concomitant]
     Indication: BLOOD CHOLESTEROL INCREASED
     Dosage: 1 MG
     Route: 048
     Dates: start: 20090623, end: 20110926
  7. LANIRAPID [Concomitant]
     Indication: HEART RATE
     Dosage: 0.05 MG
     Route: 048
     Dates: start: 20110422, end: 20110926
  8. NICARDIPINE HCL [Concomitant]
     Indication: HYPERTENSION
     Dosage: 8 MG
     Route: 048
     Dates: start: 20060101, end: 20110926
  9. PRADAXA [Suspect]
     Indication: ATRIAL FIBRILLATION
     Dosage: 225 MG
     Route: 048
     Dates: start: 20110416, end: 20110926

REACTIONS (1)
  - CEREBRAL HAEMORRHAGE [None]
